FAERS Safety Report 8350480-4 (Version None)
Quarter: 2012Q2

REPORT INFORMATION
  Report Type: 
  Country: None (occurrence: None)
  Receive Date: 20120510
  Receipt Date: 20120504
  Transmission Date: 20120825
  Serious: Yes (Hospitalization)
  Sender: FDA-Public Use
  Company Number: US-BAYER-2012-044781

PATIENT
  Age: 50 Year
  Sex: Female
  Weight: 143.76 kg

DRUGS (7)
  1. YAZ [Suspect]
     Indication: HORMONE REPLACEMENT THERAPY
  2. DROSPIRENONE AND ETHINYL ESTRADIOL [Suspect]
     Dosage: UNK
     Dates: start: 20100101
  3. DROSPIRENONE AND ETHINYL ESTRADIOL [Suspect]
     Dates: start: 20080101
  4. YAZ [Suspect]
     Indication: CONTRACEPTION
     Dosage: UNK
     Dates: start: 20080101, end: 20110101
  5. YASMIN [Suspect]
     Indication: CONTRACEPTION
     Dosage: UNK
     Dates: start: 20060101, end: 20080101
  6. YASMIN [Suspect]
     Indication: MENSTRUATION IRREGULAR
  7. IBUPROFEN [Concomitant]
     Indication: BACK PAIN
     Dosage: 800 MG, TAKES 3-4 DAYS A WEEK

REACTIONS (2)
  - DEEP VEIN THROMBOSIS [None]
  - PULMONARY EMBOLISM [None]
